FAERS Safety Report 16589902 (Version 4)
Quarter: 2019Q4

REPORT INFORMATION
  Report Type: Report from Study
  Country: None (occurrence: CA)
  Receive Date: 20190718
  Receipt Date: 20191104
  Transmission Date: 20200122
  Serious: Yes (Other)
  Sender: FDA-Public Use
  Company Number: CA-ABBVIE-19K-028-2857122-00

PATIENT
  Age: 69 Year
  Sex: Male

DRUGS (7)
  1. AZACITIDINE. [Suspect]
     Active Substance: AZACITIDINE
     Indication: ACUTE MYELOID LEUKAEMIA RECURRENT
     Dosage: FOR 7 DAYS OF EACH 28 CYCLE
     Route: 065
     Dates: start: 2019, end: 2019
  2. ASPIRIN. [Concomitant]
     Active Substance: ASPIRIN
     Indication: PRODUCT USED FOR UNKNOWN INDICATION
  3. VENETOCLAX. [Suspect]
     Active Substance: VENETOCLAX
     Indication: ACUTE MYELOID LEUKAEMIA
     Route: 048
     Dates: start: 20190215, end: 20191018
  4. ROSUVASTATIN. [Concomitant]
     Active Substance: ROSUVASTATIN
     Indication: PRODUCT USED FOR UNKNOWN INDICATION
  5. COVERSYL [Concomitant]
     Active Substance: PERINDOPRIL
     Indication: PRODUCT USED FOR UNKNOWN INDICATION
  6. AZACITIDINE. [Suspect]
     Active Substance: AZACITIDINE
     Dosage: FOR 7 DAYS OF EACH 28 CYCLE
     Route: 065
     Dates: start: 2019, end: 201910
  7. VALACYCLOVIR [Concomitant]
     Active Substance: VALACYCLOVIR HYDROCHLORIDE
     Indication: ANTIVIRAL PROPHYLAXIS

REACTIONS (13)
  - Pancytopenia [Not Recovered/Not Resolved]
  - Leukaemia [Unknown]
  - Central nervous system lesion [Unknown]
  - Off label use [Unknown]
  - Disorientation [Recovered/Resolved]
  - Acute myeloid leukaemia recurrent [Recovered/Resolved]
  - Drug ineffective [Unknown]
  - Blood electrolytes decreased [Recovered/Resolved]
  - Myelodysplastic syndrome [Not Recovered/Not Resolved]
  - Chloroma [Unknown]
  - Unevaluable event [Unknown]
  - Leukaemia [Recovered/Resolved]
  - CSF test abnormal [Unknown]

NARRATIVE: CASE EVENT DATE: 2019
